FAERS Safety Report 7744465-6 (Version None)
Quarter: 2011Q3

REPORT INFORMATION
  Report Type: 
  Country: None (occurrence: None)
  Receive Date: 20110912
  Receipt Date: 20110902
  Transmission Date: 20111222
  Serious: Yes (Other)
  Sender: FDA-Public Use
  Company Number: CHPA2011US11935

PATIENT
  Age: 88 Year
  Sex: Male

DRUGS (1)
  1. BENEFIBER W/ WHEAT DEXTRIN [Suspect]
     Indication: CONSTIPATION
     Dosage: 1 HEAPING TSP QD
     Route: 048

REACTIONS (4)
  - SCAR [None]
  - SURGERY [None]
  - OFF LABEL USE [None]
  - FLATULENCE [None]
